FAERS Safety Report 8044243-7 (Version None)
Quarter: 2011Q4

REPORT INFORMATION
  Report Type: 
  Country: None (occurrence: None)
  Receive Date: 20111202
  Receipt Date: 20101018
  Transmission Date: 20120403
  Serious: Yes (Disabling)
  Sender: FDA-Public Use
  Company Number: WAES 0912USA00704

PATIENT
  Age: 63 Year
  Sex: Female
  Weight: 71.2147 kg

DRUGS (1)
  1. FOSAMAX [Suspect]
     Indication: OSTEOPENIA
     Dosage: 70 MG/WKY/PO
     Route: 048
     Dates: start: 19990101, end: 20081228

REACTIONS (11)
  - EXCORIATION [None]
  - HAEMATOCHEZIA [None]
  - BONE DENSITY DECREASED [None]
  - FRACTURE [None]
  - HAEMORRHOIDS [None]
  - BRONCHITIS [None]
  - DENTAL NECROSIS [None]
  - OSTEONECROSIS OF JAW [None]
  - TEMPOROMANDIBULAR JOINT SYNDROME [None]
  - EYE DISORDER [None]
  - SKIN LESION [None]
